FAERS Safety Report 9063527 (Version 2)
Quarter: 2013Q1

REPORT INFORMATION
  Report Type: Report from Study
  Country: US (occurrence: US)
  Receive Date: 20130131
  Receipt Date: 20130220
  Transmission Date: 20140127
  Serious: Yes (Other)
  Sender: FDA-Public Use
  Company Number: US-ABBOTT-12P-163-1005501-00

PATIENT
  Age: 80 Year
  Sex: Female
  Weight: 54.03 kg

DRUGS (7)
  1. HUMIRA [Suspect]
     Indication: RHEUMATOID ARTHRITIS
     Dates: start: 2011
  2. LISINOPRIL [Concomitant]
     Indication: BLOOD PRESSURE
     Dates: start: 20120626
  3. SIMVASTATIN [Concomitant]
     Indication: BLOOD CHOLESTEROL
     Dates: start: 20120626
  4. PREDNISONE [Concomitant]
     Indication: PRODUCT USED FOR UNKNOWN INDICATION
     Dates: start: 20120626
  5. GABAPENTIN [Concomitant]
     Indication: PRODUCT USED FOR UNKNOWN INDICATION
     Route: 048
     Dates: start: 20130110
  6. AMBIEN [Concomitant]
     Indication: PRODUCT USED FOR UNKNOWN INDICATION
     Route: 048
  7. ROBAXIN [Concomitant]
     Indication: PRODUCT USED FOR UNKNOWN INDICATION
     Route: 048
     Dates: start: 20121121

REACTIONS (21)
  - Device component issue [Recovered/Resolved]
  - Peripheral sensorimotor neuropathy [Unknown]
  - Spinal osteoarthritis [Unknown]
  - Pseudarthrosis [Unknown]
  - Deafness [Unknown]
  - Myositis [Unknown]
  - Back pain [Unknown]
  - Anxiety [Unknown]
  - Emotional distress [Unknown]
  - Urinary tract infection [Unknown]
  - Balance disorder [Unknown]
  - Hernia [Unknown]
  - Night sweats [Unknown]
  - Dry skin [Unknown]
  - Panic attack [Unknown]
  - Dizziness [Unknown]
  - Epistaxis [Unknown]
  - Neck pain [Unknown]
  - Gait disturbance [Not Recovered/Not Resolved]
  - Back pain [Not Recovered/Not Resolved]
  - Muscle spasms [Unknown]
